FAERS Safety Report 5395597-1 (Version None)
Quarter: 2007Q3

REPORT INFORMATION
  Report Type: 
  Country: None (occurrence: None)
  Receive Date: 20070724
  Receipt Date: 20070710
  Transmission Date: 20080115
  Serious: Yes (Hospitalization, Disabling)
  Sender: FDA-Public Use
  Company Number: NL-ELI_LILLY_AND_COMPANY-NL200707002535

PATIENT
  Age: 12 Year
  Sex: Male

DRUGS (2)
  1. STRATTERA [Suspect]
     Indication: ATTENTION DEFICIT/HYPERACTIVITY DISORDER
     Dosage: 40 MG, UNK
     Dates: start: 20060901
  2. SINGULAIR [Concomitant]
     Indication: ASTHMA
     Dosage: 5 MG, UNK

REACTIONS (3)
  - APHASIA [None]
  - CEREBELLAR INFARCTION [None]
  - HEMIPLEGIA [None]
